FAERS Safety Report 13882250 (Version 1)
Quarter: 2017Q3

REPORT INFORMATION
  Report Type: Spontaneous
  Country: US (occurrence: US)
  Receive Date: 20170818
  Receipt Date: 20170818
  Transmission Date: 20171127
  Serious: Yes (Other)
  Sender: FDA-Public Use
  Company Number: US-TEVA-798148USA

PATIENT
  Sex: Female
  Weight: 72.64 kg

DRUGS (7)
  1. PRISTIQ EXTENDED-RELEASE [Concomitant]
     Active Substance: DESVENLAFAXINE SUCCINATE
     Indication: DEPRESSION
  2. FENTORA [Suspect]
     Active Substance: FENTANYL CITRATE
     Indication: INTESTINAL OBSTRUCTION
     Dosage: ONE TO TWO EVERY SIX HOURS
     Route: 002
  3. FENTORA [Suspect]
     Active Substance: FENTANYL CITRATE
     Route: 002
  4. SYNTHROID [Concomitant]
     Active Substance: LEVOTHYROXINE SODIUM
     Indication: HYPOTHYROIDISM
  5. XANAX [Concomitant]
     Active Substance: ALPRAZOLAM
     Indication: ANXIETY
  6. AMBIEN [Concomitant]
     Active Substance: ZOLPIDEM TARTRATE
     Indication: SLEEP DISORDER
  7. PRILOSEC [Concomitant]
     Active Substance: OMEPRAZOLE MAGNESIUM
     Indication: INTESTINAL OBSTRUCTION

REACTIONS (5)
  - Blood count abnormal [Unknown]
  - Volvulus [Unknown]
  - Blood iron decreased [Unknown]
  - Product use in unapproved indication [Unknown]
  - Drug tolerance [Unknown]
